FAERS Safety Report 12487260 (Version 2)
Quarter: 2016Q3

REPORT INFORMATION
  Report Type: Spontaneous
  Country: JP (occurrence: JP)
  Receive Date: 20160622
  Receipt Date: 20160921
  Transmission Date: 20161109
  Serious: Yes (Hospitalization)
  Sender: FDA-Public Use
  Company Number: JP-ROCHE-1776544

PATIENT
  Age: 58 Year
  Sex: Male

DRUGS (12)
  1. NEORAL [Concomitant]
     Active Substance: CYCLOSPORINE
     Route: 060
  2. CYCLOPHOSPHAMIDE. [Concomitant]
     Active Substance: CYCLOPHOSPHAMIDE
     Indication: B-CELL LYMPHOMA
     Dosage: SUBSEQUENT DOSES ON : 01 DEC 2015, 22 DEC 2015, 12 JAN 2016, 09 FEB 2016, AND 15 MAR?2016
     Route: 065
  3. PREDNISONE. [Concomitant]
     Active Substance: PREDNISONE
     Indication: B-CELL LYMPHOMA
     Dosage: SUBSEQUENT DOSES ON : 01 DEC 2015, 22 DEC 2015, 12 JAN 2016, 09 FEB 2016, AND 15 MAR?2016
     Route: 065
  4. VFEND [Concomitant]
     Active Substance: VORICONAZOLE
     Indication: PROPHYLAXIS
     Route: 048
  5. CHLORPHENIRAMINE MALEATE. [Concomitant]
     Active Substance: CHLORPHENIRAMINE MALEATE
  6. ZOLPIDEM TARTRATE. [Concomitant]
     Active Substance: ZOLPIDEM TARTRATE
     Indication: INSOMNIA
     Route: 048
  7. LANSOPRAZOLE. [Concomitant]
     Active Substance: LANSOPRAZOLE
     Indication: PROPHYLAXIS
     Route: 048
  8. VINCRISTINE [Concomitant]
     Active Substance: VINCRISTINE
     Indication: B-CELL LYMPHOMA
     Dosage: SUBSEQUENT DOSES ON : 01 DEC 2015, 22 DEC 2015, 12 JAN 2016, 09 FEB 2016, AND 15 MAR?2016
     Route: 065
  9. ACETAMINOPHEN. [Concomitant]
     Active Substance: ACETAMINOPHEN
     Route: 048
  10. RITUXAN [Suspect]
     Active Substance: RITUXIMAB
     Indication: B-CELL LYMPHOMA
     Dosage: SUBSEQUENT DOSES: 30/NOV/2015, 21/DEC/2015, 08/JAN/2016, 08/FEB/2016
     Route: 042
     Dates: start: 20151112, end: 20160314
  11. SULFAMETHOXAZOLE AND TRIMETHOPRIM [Concomitant]
     Active Substance: SULFAMETHOXAZOLE\TRIMETHOPRIM
     Indication: PROPHYLAXIS
     Route: 065
  12. DOXORUBICIN HYDROCHLORIDE. [Concomitant]
     Active Substance: DOXORUBICIN HYDROCHLORIDE
     Indication: B-CELL LYMPHOMA
     Dosage: SUBSEQUENT DOSES ON : 01 DEC 2015, 22 DEC 2015, 12 JAN 2016, 09 FEB 2016, AND 15 MAR?2016
     Route: 065

REACTIONS (1)
  - Hypoxia [Not Recovered/Not Resolved]

NARRATIVE: CASE EVENT DATE: 20160329
